FAERS Safety Report 22792759 (Version 2)
Quarter: 2025Q3

REPORT INFORMATION
  Report Type: Report from Study
  Country: US (occurrence: US)
  Receive Date: 20230807
  Receipt Date: 20250831
  Transmission Date: 20251020
  Serious: No
  Sender: NOVARTIS
  Company Number: US-002147023-NVSC2023US169721

PATIENT

DRUGS (7)
  1. TRIAMCINOLONE [Suspect]
     Active Substance: TRIAMCINOLONE
     Indication: Psoriasis
     Route: 065
  2. TACROLIMUS [Suspect]
     Active Substance: TACROLIMUS
     Indication: Psoriasis
     Route: 065
  3. FLUOCINOLONE [Suspect]
     Active Substance: FLUOCINOLONE
     Indication: Psoriasis
     Route: 065
  4. HYDROCORTISONE [Suspect]
     Active Substance: HYDROCORTISONE
     Indication: Psoriasis
     Route: 065
  5. KETOCONAZOLE [Suspect]
     Active Substance: KETOCONAZOLE
     Indication: Psoriasis
     Route: 065
  6. CLOBETASOL [Suspect]
     Active Substance: CLOBETASOL
     Indication: Psoriasis
     Route: 065
  7. FLUCONAZOLE [Suspect]
     Active Substance: FLUCONAZOLE
     Indication: Psoriasis
     Route: 065

REACTIONS (12)
  - Psoriasis [Unknown]
  - Dermatitis [Unknown]
  - Blood sodium decreased [Unknown]
  - Aspartate aminotransferase increased [Unknown]
  - Blood alkaline phosphatase decreased [Unknown]
  - Alanine aminotransferase abnormal [Unknown]
  - Guttate psoriasis [Unknown]
  - Nodule [Unknown]
  - Erythema [Unknown]
  - Skin hyperpigmentation [Unknown]
  - Drug ineffective [Unknown]
  - Product use in unapproved indication [Unknown]
